FAERS Safety Report 7400272-5 (Version None)
Quarter: 2011Q2

REPORT INFORMATION
  Report Type: 
  Country: None (occurrence: None)
  Receive Date: 20110407
  Receipt Date: 20110328
  Transmission Date: 20111010
  Serious: Yes (Hospitalization, Other)
  Sender: FDA-Public Use
  Company Number: TW-ELI_LILLY_AND_COMPANY-TW201104000086

PATIENT
  Age: 63 Year
  Sex: Male
  Weight: 58.4 kg

DRUGS (13)
  1. VITAMIN K1 [Concomitant]
     Indication: ANAEMIA
     Dosage: 1 DF, MONTHLY (1/M)
  2. BISACODYL [Concomitant]
     Dosage: 5 MG, QD
     Dates: start: 20080801
  3. BIPERIDEN HYDROCHLORIDE TAB [Concomitant]
     Indication: PROPHYLAXIS
     Dosage: 2 MG, TID
     Dates: start: 20080801, end: 20081001
  4. TRAZODONE HCL [Concomitant]
     Indication: SLEEP DISORDER
     Dosage: 50 MG, QD
     Dates: start: 20080801
  5. ESTAZOLAM [Concomitant]
     Dosage: 2 MG, QD
     Dates: start: 20080801
  6. RISPERIDONE [Concomitant]
     Dosage: 2 MG, QD
     Dates: start: 20080801, end: 20081001
  7. OLANZAPINE [Suspect]
     Dosage: 5 MG, QD
     Dates: start: 20081001
  8. HALOPERIDOL [Concomitant]
     Dosage: 1.25 MG, BID
     Dates: start: 20081201
  9. BIPERIDEN HYDROCHLORIDE TAB [Concomitant]
     Dosage: 2 MG, TID
     Dates: start: 20090401
  10. HALOPERIDOL [Concomitant]
     Dosage: 5 MG, QD
     Dates: end: 20090601
  11. FLUOXETINE HYDROCHLORIDE [Suspect]
     Dosage: 20 MG, QD
     Dates: start: 20080801
  12. MECOBALAMIN [Concomitant]
     Indication: ANAEMIA
     Dosage: 1 DF, MONTHLY (1/M)
  13. BIPERIDEN HYDROCHLORIDE TAB [Concomitant]
     Dosage: 2 MG, TID
     Dates: start: 20081201, end: 20090201

REACTIONS (6)
  - THROMBOCYTOPENIA [None]
  - FRACTURE [None]
  - BLOOD CREATININE INCREASED [None]
  - LEUKOPENIA [None]
  - DRUG INTERACTION [None]
  - PARKINSON'S DISEASE [None]
